FAERS Safety Report 5246560-2 (Version None)
Quarter: 2007Q1

REPORT INFORMATION
  Report Type: 
  Country: None (occurrence: None)
  Receive Date: 20070226
  Receipt Date: 20070215
  Transmission Date: 20070707
  Serious: Yes (Death)
  Sender: FDA-Public Use
  Company Number: TR-AVENTIS-200711465GDDC

PATIENT
  Age: 53 Year
  Sex: Male

DRUGS (2)
  1. DOCETAXEL [Suspect]
     Route: 042
     Dates: start: 20060101
  2. CISPLATIN [Suspect]
     Route: 042
     Dates: start: 20060101

REACTIONS (1)
  - INTESTINAL ISCHAEMIA [None]
